FAERS Safety Report 9801591 (Version 1)
Quarter: 2014Q1

REPORT INFORMATION
  Report Type: Spontaneous
  Country: US (occurrence: US)
  Receive Date: 20140107
  Receipt Date: 20140107
  Transmission Date: 20141002
  Serious: No
  Sender: FDA-Public Use
  Company Number: US-GILEAD-2011-0035774

PATIENT
  Age: 63 Year
  Sex: Female
  Weight: 109.3 kg

DRUGS (17)
  1. RANEXA [Suspect]
     Indication: CARDIAC DISORDER
     Route: 048
     Dates: start: 201011
  2. DEXILANT [Suspect]
     Indication: GASTROOESOPHAGEAL REFLUX DISEASE
     Route: 048
     Dates: start: 201005
  3. ISOSORBIDE MN ER [Suspect]
     Indication: CARDIAC DISORDER
     Route: 048
     Dates: start: 201011
  4. CADUET [Concomitant]
     Indication: HYPERTENSION
  5. CADUET [Concomitant]
     Indication: BLOOD CHOLESTEROL INCREASED
  6. SYNTHROID [Concomitant]
     Indication: HYPOTHYROIDISM
     Dates: start: 2007
  7. ZETIA [Concomitant]
     Indication: BLOOD CHOLESTEROL INCREASED
     Dates: start: 2007
  8. ASPIRIN [Concomitant]
     Indication: CARDIAC DISORDER
     Dates: start: 2002
  9. ASPIRIN [Concomitant]
     Indication: ANTICOAGULANT THERAPY
  10. CLORAZEPATE [Concomitant]
     Indication: ANXIETY
     Dates: start: 2005
  11. LEXAPRO [Concomitant]
     Indication: DEPRESSION
     Dates: start: 20100723
  12. SINGULAIR [Concomitant]
     Indication: HYPERSENSITIVITY
     Dates: start: 201004
  13. METOPROLOL [Concomitant]
     Indication: CARDIAC DISORDER
     Dates: start: 2002
  14. FISH OIL [Concomitant]
     Indication: SUPPLEMENTATION THERAPY
     Dates: start: 2010
  15. CENTRUM SILVER [Concomitant]
     Indication: SUPPLEMENTATION THERAPY
  16. CALCIUM PLUS D [Concomitant]
     Indication: SUPPLEMENTATION THERAPY
     Dates: start: 2007
  17. NITROGLYCERIN [Concomitant]
     Dates: end: 201011

REACTIONS (4)
  - Eructation [Not Recovered/Not Resolved]
  - Eructation [Not Recovered/Not Resolved]
  - Flatulence [Not Recovered/Not Resolved]
  - Dizziness [Not Recovered/Not Resolved]
